FAERS Safety Report 14160204 (Version 2)
Quarter: 2017Q4

REPORT INFORMATION
  Report Type: Report from Study
  Country: None (occurrence: CO)
  Receive Date: 20171103
  Receipt Date: 20171130
  Transmission Date: 20180321
  Serious: Yes (Death, Hospitalization, Other)
  Sender: FDA-Public Use
  Company Number: CO-ABBVIE-17S-036-2150279-00

PATIENT
  Age: 64 Year
  Sex: Female
  Weight: 78 kg

DRUGS (1)
  1. VIEKIRA PAK [Suspect]
     Active Substance: DASABUVIR\OMBITASVIR\PARITAPREVIR\RITONAVIR
     Indication: HEPATITIS C
     Dosage: 3 AT MORNING, 1 AT NIGHT
     Route: 048
     Dates: start: 20170210, end: 20170728

REACTIONS (6)
  - Hepatic cancer metastatic [Not Recovered/Not Resolved]
  - Cardio-respiratory arrest [Fatal]
  - Vomiting [Unknown]
  - General physical health deterioration [Unknown]
  - Pain [Unknown]
  - Abdominal pain [Not Recovered/Not Resolved]

NARRATIVE: CASE EVENT DATE: 2017
